FAERS Safety Report 17082881 (Version 2)
Quarter: 2019Q4

REPORT INFORMATION
  Report Type: Spontaneous
  Country: DE (occurrence: DE)
  Receive Date: 20191127
  Receipt Date: 20191203
  Transmission Date: 20200122
  Serious: Yes (Life-Threatening, Hospitalization, Other)
  Sender: FDA-Public Use
  Company Number: DE-MYLANLABS-2019M1116603

PATIENT
  Age: 68 Year
  Sex: Male
  Weight: 120 kg

DRUGS (16)
  1. MIRTAZAPIN [Concomitant]
     Active Substance: MIRTAZAPINE
     Dosage: 30 MILLIGRAM, QD (0-0-0-1, TABLETTEN)
     Route: 048
  2. PREGABALIN BETA [Concomitant]
     Active Substance: PREGABALIN
     Dosage: 50 MILLIGRAM, BID (1-0-1-0, TABLETTEN)
     Route: 048
  3. DICLOFENAC [Suspect]
     Active Substance: DICLOFENAC
     Indication: PRODUCT USED FOR UNKNOWN INDICATION
     Dosage: 75 MILLIGRAM, BID (1-0-1-0, TABLETTEN)
     Route: 048
  4. ASPIRIN. [Suspect]
     Active Substance: ASPIRIN
     Indication: PRODUCT USED FOR UNKNOWN INDICATION
     Dosage: 100 MILLIGRAM, QD (1-0-0-0, TABLETTEN)
     Route: 048
  5. PALLADON [Concomitant]
     Active Substance: HYDROMORPHONE
     Dosage: 2.6 MILLIGRAM (BEDARF, TABLETTEN)
     Route: 048
  6. TAMSULOSIN [Concomitant]
     Active Substance: TAMSULOSIN
     Dosage: 0.4 MILLIGRAM, QD (1-0-0-0, TABLETTEN)
     Route: 048
  7. PREDNISOLON                        /00016201/ [Concomitant]
     Active Substance: PREDNISOLONE
     Dosage: 5 MILLIGRAM, BID (1-0-1-0, TABLETTEN)
     Route: 048
  8. CLEXANE [Concomitant]
     Active Substance: ENOXAPARIN SODIUM
     Dosage: 0.4 MILLILITER, BID (1-0-1-0, INJEKTIONS-/INFUSIONSL?SUNG)
     Route: 058
  9. NOVAMINSULFON [Concomitant]
     Active Substance: METAMIZOLE
     Dosage: 40 GTT DROPS, QID (40 GTT, 1-1-1-1, TROPFEN)
     Route: 048
  10. MOXONIDIN [Concomitant]
     Active Substance: MOXONIDINE
     Dosage: 0.2 MILLIGRAM, QD (1-0-0-0, TABLETTEN)
     Route: 048
  11. MOVICOL [Concomitant]
     Active Substance: POLYETHYLENE GLYCOL 3350\POTASSIUM CHLORIDE\SODIUM BICARBONATE\SODIUM CHLORIDE
     Dosage: 13.125|0.35|0.18|0.05 G, 0-1-0-0, BEUTEL
     Route: 048
  12. PANTOZOL [Concomitant]
     Active Substance: PANTOPRAZOLE SODIUM
     Dosage: 40 MILLIGRAM, QD (1-0-0-0)
     Route: 048
  13. CALCIUM D3 [Concomitant]
     Active Substance: CALCIUM\CHOLECALCIFEROL
     Dosage: 1500|400 MG/IE, 1-0-0-0, BRAUSETABLETTEN
     Route: 048
  14. ZYTIGA [Concomitant]
     Active Substance: ABIRATERONE ACETATE
     Dosage: 250 MILLIGRAM (4-0-0-0, TABLETTEN)
     Route: 048
  15. PALLADONE [Concomitant]
     Active Substance: HYDROMORPHONE HYDROCHLORIDE
     Dosage: 24 MILLIGRAM, BID (1-0-1-0, RETARD-TABLETTEN)
     Route: 048
  16. TORASEMID [Concomitant]
     Active Substance: TORSEMIDE
     Dosage: 10 MILLIGRAM, QD (1-0-0-0, TABLETTEN)
     Route: 048

REACTIONS (5)
  - Shock [Unknown]
  - Haematochezia [Unknown]
  - Back pain [Unknown]
  - Haemorrhage [Unknown]
  - Shock haemorrhagic [Unknown]
